FAERS Safety Report 10141908 (Version 4)
Quarter: 2014Q2

REPORT INFORMATION
  Report Type: Report from Study
  Country: AU (occurrence: AU)
  Receive Date: 20140429
  Receipt Date: 20140607
  Transmission Date: 20141212
  Serious: Yes (Death, Hospitalization)
  Sender: FDA-Public Use
  Company Number: PHHO2014AU006070

PATIENT
  Age: 69 Year
  Sex: Female
  Weight: 62.5 kg

DRUGS (13)
  1. HYDROCHLOROTHIAZIDE [Suspect]
     Indication: CARDIAC FAILURE
     Dosage: 25 MG, TWICE WEEKLY
  2. HYDROCHLOROTHIAZIDE [Suspect]
     Indication: DIURETIC THERAPY
  3. BLINDED NO TREATMENT RECEIVED [Suspect]
     Indication: CARDIAC FAILURE ACUTE
     Dosage: CODE NOT BROKEN (48 HR IV INFUSION)
     Dates: start: 20140409, end: 20140411
  4. BLINDED PLACEBO [Suspect]
     Indication: CARDIAC FAILURE ACUTE
     Dosage: CODE NOT BROKEN (48 HR IV INFUSION)
     Dates: start: 20140409, end: 20140411
  5. BLINDED RLX030 [Suspect]
     Indication: CARDIAC FAILURE ACUTE
     Dosage: CODE NOT BROKEN (48 HR IV INFUSION)
     Dates: start: 20140409, end: 20140411
  6. SPIRONOLACTONE [Suspect]
     Indication: CARDIAC FAILURE
     Dosage: 12.5 MG, 3 TIMES WEEKLY
  7. SPIRONOLACTONE [Suspect]
     Indication: DIURETIC THERAPY
  8. AMIODARONE [Concomitant]
     Indication: ATRIAL FIBRILLATION
     Dosage: 200 MG, MANE
  9. ATORVASTATIN [Concomitant]
     Indication: HYPERCHOLESTEROLAEMIA
     Dosage: 10 MG, QD
  10. APIXABAN [Concomitant]
     Indication: COAGULOPATHY
     Dosage: 2.5 MG, QD
  11. FRUSEMIDE [Concomitant]
     Indication: CARDIAC FAILURE
     Dosage: 125 MG, BID
     Dates: end: 20140421
  12. FRUSEMIDE [Concomitant]
     Indication: DIURETIC THERAPY
  13. NEBIVOLOL [Concomitant]
     Indication: CARDIAC FAILURE
     Dosage: 2.5 MG, MANE

REACTIONS (6)
  - Gastroenteritis [Fatal]
  - Renal failure acute [Fatal]
  - Cardiac failure congestive [Fatal]
  - Cardiac failure chronic [Fatal]
  - Renal failure chronic [Fatal]
  - Renal impairment [Fatal]
